FAERS Safety Report 10805825 (Version 1)
Quarter: 2015Q1

REPORT INFORMATION
  Report Type: Report from Study
  Country: US (occurrence: US)
  Receive Date: 20150217
  Receipt Date: 20150217
  Transmission Date: 20150721
  Serious: No
  Sender: FDA-Public Use
  Company Number: US-ABBVIE-14K-163-1241250-00

PATIENT
  Age: 27 Year
  Sex: Male

DRUGS (2)
  1. HUMIRA [Suspect]
     Active Substance: ADALIMUMAB
     Indication: PSORIASIS
     Dosage: DAY ONE LOADING DOSE
     Route: 058
     Dates: start: 20140505, end: 20140505
  2. HUMIRA [Suspect]
     Active Substance: ADALIMUMAB
     Dosage: DAY EIGHT DOSE
     Route: 058
     Dates: start: 20140512

REACTIONS (1)
  - Sinus congestion [Recovered/Resolved]

NARRATIVE: CASE EVENT DATE: 201405
